FAERS Safety Report 6470216-1 (Version None)
Quarter: 2009Q4

REPORT INFORMATION
  Report Type: 
  Country: None (occurrence: None)
  Receive Date: 20091203
  Receipt Date: 20071217
  Transmission Date: 20100525
  Serious: Yes (Hospitalization, Other)
  Sender: FDA-Public Use
  Company Number: TR-ELI_LILLY_AND_COMPANY-TR200801000140

PATIENT
  Sex: Female
  Weight: 48 kg

DRUGS (1)
  1. HUMALOG MIX 75/25 [Suspect]
     Indication: TYPE 1 DIABETES MELLITUS
     Dosage: 3 TIMES DAILY
     Route: 058
     Dates: start: 20000101

REACTIONS (2)
  - ARM AMPUTATION [None]
  - RENAL DISORDER [None]
